FAERS Safety Report 7430858-3 (Version None)
Quarter: 2011Q2

REPORT INFORMATION
  Report Type: 
  Country: None (occurrence: None)
  Receive Date: 20110421
  Receipt Date: 20110407
  Transmission Date: 20111010
  Serious: Yes (Hospitalization)
  Sender: FDA-Public Use
  Company Number: HR-JNJFOC-20110404042

PATIENT
  Age: 47 Year
  Sex: Female
  Weight: 90 kg

DRUGS (2)
  1. REMICADE [Suspect]
     Indication: PSORIASIS
     Route: 042
  2. NEXIUM [Concomitant]
     Indication: GASTRIC DISORDER
     Route: 048

REACTIONS (9)
  - ARTHRALGIA [None]
  - PYREXIA [None]
  - LYMPHADENOPATHY MEDIASTINAL [None]
  - JOINT SWELLING [None]
  - MYALGIA [None]
  - MALAISE [None]
  - DIARRHOEA [None]
  - PANNICULITIS [None]
  - PSORIASIS [None]
